FAERS Safety Report 6259348-0 (Version None)
Quarter: 2009Q3

REPORT INFORMATION
  Report Type: 
  Country: None (occurrence: None)
  Receive Date: 20090706
  Receipt Date: 20090623
  Transmission Date: 20100115
  Serious: Yes (Death, Other)
  Sender: FDA-Public Use
  Company Number: MC200900218

PATIENT
  Age: 68 Year
  Sex: Male

DRUGS (3)
  1. ANGIOMAX [Suspect]
     Indication: PERCUTANEOUS CORONARY INTERVENTION
     Dosage: BOLUS, INTRAVENOUS
     Route: 040
     Dates: start: 20090619, end: 20090619
  2. ANGIOMAX [Suspect]
     Indication: PERCUTANEOUS CORONARY INTERVENTION
     Dosage: BOLUS, INTRAVENOUS
     Route: 040
     Dates: start: 20090619, end: 20090619
  3. ANGIOMAX [Suspect]

REACTIONS (3)
  - CATHETER THROMBOSIS [None]
  - CORONARY ARTERY OCCLUSION [None]
  - PULMONARY HAEMORRHAGE [None]
